FAERS Safety Report 13817998 (Version 1)
Quarter: 2017Q3

REPORT INFORMATION
  Report Type: Spontaneous
  Country: US (occurrence: US)
  Receive Date: 20170731
  Receipt Date: 20170731
  Transmission Date: 20171127
  Serious: No
  Sender: FDA-Public Use
  Company Number: US-ROCHE-616788

PATIENT
  Age: 70 Year
  Sex: Female
  Weight: 77.1 kg

DRUGS (4)
  1. CRESTOR [Concomitant]
     Active Substance: ROSUVASTATIN CALCIUM
     Dosage: TAKEN EVERY NIGHT
     Route: 065
  2. NEXIUM [Concomitant]
     Active Substance: ESOMEPRAZOLE MAGNESIUM
     Route: 065
  3. BONIVA [Suspect]
     Active Substance: IBANDRONATE SODIUM
     Indication: OSTEOPOROSIS
     Dosage: DOSE: 3 MG/3ML; PREFILLED SYRINGE
     Route: 042
  4. METOPROLOL. [Concomitant]
     Active Substance: METOPROLOL
     Dosage: FREQUENCY: BIN
     Route: 065

REACTIONS (2)
  - Bone pain [Unknown]
  - Pain [Not Recovered/Not Resolved]

NARRATIVE: CASE EVENT DATE: 200812
